FAERS Safety Report 16716721 (Version 2)
Quarter: 2019Q3

REPORT INFORMATION
  Report Type: Spontaneous
  Country: US (occurrence: US)
  Receive Date: 20190819
  Receipt Date: 20190820
  Transmission Date: 20191005
  Serious: Yes (Hospitalization, Other)
  Sender: FDA-Public Use
  Company Number: US-PFIZER INC-2019337197

PATIENT
  Age: 78 Year
  Sex: Female
  Weight: 96.15 kg

DRUGS (4)
  1. LYRICA [Suspect]
     Active Substance: PREGABALIN
     Indication: NEURALGIA
     Dosage: UNK, 3X/DAY
  2. LYRICA [Suspect]
     Active Substance: PREGABALIN
     Indication: PAIN IN EXTREMITY
     Dosage: UNK, ONCE OR TWICE DAILY
  3. LYRICA [Suspect]
     Active Substance: PREGABALIN
     Dosage: 100 MG, 1X/DAY (TAKE 1 CAPSULE BY MOUTH TAKE ONCE DAILY ON AN EMPTY STOMACH)
     Route: 048
  4. LYRICA [Suspect]
     Active Substance: PREGABALIN
     Dosage: 100 MG, DAILY
     Route: 048
     Dates: start: 2018

REACTIONS (5)
  - Intentional product misuse [Unknown]
  - Peripheral swelling [Unknown]
  - Renal failure [Not Recovered/Not Resolved]
  - Cerebrovascular accident [Unknown]
  - Dementia [Unknown]

NARRATIVE: CASE EVENT DATE: 201907
